FAERS Safety Report 9925608 (Version 3)
Quarter: 2014Q2

REPORT INFORMATION
  Report Type: Spontaneous
  Country: US (occurrence: US)
  Receive Date: 20140226
  Receipt Date: 20140403
  Transmission Date: 20141212
  Serious: No
  Sender: FDA-Public Use
  Company Number: US-PFIZER INC-2013028774

PATIENT
  Age: 64 Year
  Sex: Female

DRUGS (9)
  1. EFFEXOR XR [Suspect]
     Indication: DEPRESSION
     Dosage: 75 MG, 1 EVERY 24 HRS
  2. EFFEXOR XR [Suspect]
     Dosage: UNK
     Dates: start: 20130109
  3. ASCORBIC ACID [Concomitant]
     Dosage: UNK
  4. CALCIUM [Concomitant]
     Dosage: UNK
  5. FLONASE [Concomitant]
     Dosage: UNK
  6. M.V.I. [Concomitant]
     Dosage: UNK
  7. OMEGA-3 [Concomitant]
     Dosage: UNK
  8. TAMOXIFEN [Concomitant]
     Dosage: UNK
  9. TRIAMCINOLONE [Concomitant]
     Dosage: UNK

REACTIONS (1)
  - No adverse event [Unknown]
